FAERS Safety Report 4738675-X (Version None)
Quarter: 2005Q3

REPORT INFORMATION
  Report Type: 
  Country: None (occurrence: None)
  Receive Date: 20050809
  Receipt Date: 20050809
  Transmission Date: 20060218
  Serious: Yes (Life-Threatening)
  Sender: FDA-Public Use
  Company Number: None

PATIENT
  Age: 25 Month
  Sex: Female
  Weight: 10 kg

DRUGS (7)
  1. THIOTEPA [Suspect]
     Indication: MEDULLOBLASTOMA
     Dosage: 10 MG/KG   DAILY X 3DOSES  INTRAVENOU
     Route: 042
     Dates: start: 20050724, end: 20050726
  2. CARBOPLATIN [Suspect]
     Dosage: 16.7 MG/KG   DAILY X 3DOSE  INTRAVENOU
     Route: 042
     Dates: start: 20050721, end: 20050723
  3. ETOPOSIDE [Concomitant]
  4. ZOSYN [Concomitant]
  5. GENT [Concomitant]
  6. AMPHOTERICIN B [Concomitant]
  7. TPN/INTRALIPIDS [Concomitant]

REACTIONS (6)
  - ABDOMINAL DISTENSION [None]
  - ASCITES [None]
  - BLOOD BILIRUBIN INCREASED [None]
  - LUNG INFILTRATION [None]
  - RESPIRATORY DISTRESS [None]
  - VENOUS OCCLUSION [None]
